FAERS Safety Report 7326013-8 (Version None)
Quarter: 2011Q1

REPORT INFORMATION
  Report Type: 
  Country: None (occurrence: None)
  Receive Date: 20110302
  Receipt Date: 20110223
  Transmission Date: 20110831
  Serious: Yes (Life-Threatening, Hospitalization, Other)
  Sender: FDA-Public Use
  Company Number: CA-JNJFOC-20101004535

PATIENT
  Sex: Male
  Weight: 142.43 kg

DRUGS (9)
  1. REMICADE [Suspect]
     Indication: PSORIASIS
     Route: 042
  2. CRESTOR [Concomitant]
  3. METHOTREXATE [Suspect]
     Indication: PSORIASIS
  4. ASPIRIN [Concomitant]
  5. OXAZEPAM [Concomitant]
  6. ZOPICLONE [Concomitant]
  7. VITAMIN B-12 [Concomitant]
  8. REMERON [Concomitant]
  9. ALLOPURINOL [Concomitant]

REACTIONS (3)
  - PNEUMONIA LEGIONELLA [None]
  - MULTI-ORGAN FAILURE [None]
  - SEPSIS [None]
